FAERS Safety Report 24411262 (Version 1)
Quarter: 2024Q4

REPORT INFORMATION
  Report Type: Spontaneous
  Country: CN (occurrence: CN)
  Receive Date: 20241008
  Receipt Date: 20241008
  Transmission Date: 20250115
  Serious: Yes (Other)
  Sender: PFIZER
  Company Number: CN-PFIZER INC-PV202400128353

PATIENT
  Age: 62 Year
  Sex: Female
  Weight: 54.5 kg

DRUGS (4)
  1. EPIRUBICIN HYDROCHLORIDE [Suspect]
     Active Substance: EPIRUBICIN HYDROCHLORIDE
     Indication: Breast cancer
     Dosage: 80 MG, 1X/DAY
     Route: 013
     Dates: start: 20240906, end: 20240906
  2. CYCLOPHOSPHAMIDE [Suspect]
     Active Substance: CYCLOPHOSPHAMIDE
     Indication: Breast cancer
     Dosage: 0.5 G, 1X/DAY
     Route: 013
     Dates: start: 20240906, end: 20240906
  3. SODIUM CHLORIDE [Concomitant]
     Active Substance: SODIUM CHLORIDE
     Indication: Vehicle solution use
     Dosage: 60 ML, 1X/DAY (WITH EPIRUBICIN)
     Route: 013
     Dates: start: 20240906, end: 20240906
  4. SODIUM CHLORIDE [Concomitant]
     Active Substance: SODIUM CHLORIDE
     Dosage: 60 ML, 1X/DAY (WITH CYCLOPHOSPHAMIDE)
     Route: 013
     Dates: start: 20240906, end: 20240906

REACTIONS (4)
  - Dizziness [Recovering/Resolving]
  - Blood pressure decreased [Recovering/Resolving]
  - Cold sweat [Recovered/Resolved]
  - Off label use [Unknown]

NARRATIVE: CASE EVENT DATE: 20240906
